FAERS Safety Report 8118509 (Version 2)
Quarter: 2012Q4

REPORT INFORMATION
  Report Type: 
  Country: FR (occurrence: FR)
  Receive Date: 20110902
  Receipt Date: 20121029
  Transmission Date: 20130627
  Serious: Yes (Hospitalization, Other)
  Sender: FDA-Public Use
  Company Number: FR-GENZYME-CLOF-1001759

PATIENT
  Age: 23 Year
  Sex: Female
  Weight: 66 kg

DRUGS (4)
  1. EVOLTRA [Suspect]
     Indication: ACUTE MYELOID LEUKAEMIA
     Dosage: 53 mg, UNK
     Route: 042
     Dates: start: 20110713, end: 20110717
  2. CYTARABINE [Suspect]
     Indication: ACUTE MYELOID LEUKAEMIA
     Dosage: 1750 mg, UNK
     Route: 042
     Dates: start: 20110712, end: 20110716
  3. FILGRASTIM [Suspect]
     Indication: ACUTE MYELOID LEUKAEMIA
     Dosage: 330 mcg, UNK
     Route: 042
     Dates: start: 20110712, end: 20110717
  4. ORAL CONTRACEPTIVE NOS [Concomitant]
     Indication: METRORRHAGIA
     Dosage: UNK
     Route: 048

REACTIONS (3)
  - Subclavian vein thrombosis [Recovered/Resolved]
  - Axillary vein thrombosis [Recovered/Resolved]
  - Subclavian artery stenosis [Unknown]
